FAERS Safety Report 5414614-3 (Version None)
Quarter: 2007Q3

REPORT INFORMATION
  Report Type: 
  Country: None (occurrence: None)
  Receive Date: 20070731
  Receipt Date: 20070405
  Transmission Date: 20080115
  Serious: No
  Sender: FDA-Public Use
  Company Number: 2006PV022356

PATIENT
  Age: 59 Year
  Sex: Male

DRUGS (2)
  1. EXENATIDE (EXENATIDE) PEN, DISPOSABLE [Suspect]
     Indication: DIABETES MELLITUS
     Dosage: 10 UG, 2/D, SUBCUTANEOUS   5 UG, 2/D, SUBCUTANEOUS   10 UG, SUBCUTANEOUS
     Route: 058
  2. EXENATIDE (EXENATIDE) PEN, DISPOSABLE [Suspect]

REACTIONS (1)
  - BLOOD GLUCOSE INCREASED [None]
